FAERS Safety Report 11253013 (Version 1)
Quarter: 2015Q3

REPORT INFORMATION
  Report Type: Spontaneous
  Country: US (occurrence: None)
  Receive Date: 20150707
  Receipt Date: 20150707
  Transmission Date: 20151125
  Serious: Yes (Other)
  Sender: FDA-Public Use
  Company Number: EY-BP-US-2015-079

PATIENT
  Age: 70 Year
  Sex: Female

DRUGS (1)
  1. BUPRENORPHINE HYDROCHLORIDE. [Suspect]
     Active Substance: BUPRENORPHINE HYDROCHLORIDE
     Indication: BACK PAIN
     Dates: start: 201502, end: 201504

REACTIONS (6)
  - Somnolence [None]
  - Off label use [None]
  - Urine odour abnormal [None]
  - Weight increased [None]
  - Renal disorder [None]
  - Increased appetite [None]
